FAERS Safety Report 6611035-2 (Version None)
Quarter: 2010Q1

REPORT INFORMATION
  Report Type: 
  Country: None (occurrence: None)
  Receive Date: 20100302
  Receipt Date: 20100301
  Transmission Date: 20100710
  Serious: No
  Sender: FDA-Public Use
  Company Number: US-ASTRAZENECA-2009UW21206

PATIENT
  Age: 55 Year
  Sex: Female
  Weight: 94.3 kg

DRUGS (14)
  1. SEROQUEL [Suspect]
     Indication: SCHIZOPHRENIA
     Route: 048
     Dates: start: 20021101
  2. SEROQUEL [Suspect]
     Indication: DEPRESSION
     Route: 048
     Dates: start: 20021101
  3. GEODON [Concomitant]
     Indication: SCHIZOPHRENIA
     Dates: start: 20060101, end: 20070101
  4. GEODON [Concomitant]
     Indication: DEPRESSION
     Dates: start: 20060101, end: 20070101
  5. HALDOL [Concomitant]
     Dosage: 50-100 MG EVERY 2 TO 4 WEEKS
     Dates: start: 20000101, end: 20030101
  6. NAVANE [Concomitant]
     Indication: SCHIZOPHRENIA
     Dates: start: 20090101
  7. NAVANE [Concomitant]
     Indication: DEPRESSION
     Dates: start: 20090101
  8. RISPERDAL [Concomitant]
     Indication: SCHIZOPHRENIA
     Dates: start: 20060101, end: 20070101
  9. RISPERDAL [Concomitant]
     Indication: DEPRESSION
     Dates: start: 20060101, end: 20070101
  10. TRILAFON/TRIAVIL [Concomitant]
  11. ZYPREXA/SYMBYAX [Concomitant]
     Indication: SCHIZOPHRENIA
     Dates: start: 20080101, end: 20090101
  12. ZYPREXA/SYMBYAX [Concomitant]
     Indication: DEPRESSION
     Dates: start: 20080101, end: 20090101
  13. FLUPHENAZINE [Concomitant]
     Indication: SCHIZOPHRENIA
     Dates: start: 20030101, end: 20040101
  14. FLUPHENAZINE [Concomitant]
     Indication: DEPRESSION
     Dates: start: 20030101, end: 20040101

REACTIONS (2)
  - CATARACT [None]
  - TYPE 2 DIABETES MELLITUS [None]
